FAERS Safety Report 10985033 (Version 1)
Quarter: 2015Q1

REPORT INFORMATION
  Report Type: Spontaneous
  Country: US (occurrence: None)
  Receive Date: 20150312
  Receipt Date: 20150312
  Transmission Date: 20150721
  Serious: Yes (Other)
  Sender: FDA-Public Use
  Company Number: 1000067855

PATIENT
  Sex: Female

DRUGS (3)
  1. SAVELLA [Suspect]
     Active Substance: MILNACIPRAN HYDROCHLORIDE
     Indication: FIBROMYALGIA
     Dosage: 12.5MG  (12.5 MG, 1 IN 1 D), ORAL
     Route: 048
     Dates: start: 20140408, end: 20140408
  2. INDERAL (PROPRANOLOL HYDROCHLORIDE) (PROPRANOLOL HYDROCHLORIDE) [Concomitant]
  3. XANAX (ALPRAZOLAM) (ALPRAZOLAM) [Concomitant]

REACTIONS (5)
  - Hot flush [None]
  - Hypertension [None]
  - Palpitations [None]
  - Nausea [None]
  - Anxiety [None]

NARRATIVE: CASE EVENT DATE: 2014
